FAERS Safety Report 23414284 (Version 1)
Quarter: 2024Q1

REPORT INFORMATION
  Report Type: Spontaneous
  Country: CA (occurrence: CA)
  Receive Date: 20240118
  Receipt Date: 20240118
  Transmission Date: 20240410
  Serious: Yes (Hospitalization, Other)
  Sender: FDA-Public Use
  Company Number: CA-CHEPLA-2024000617

PATIENT
  Age: 36 Year
  Sex: Male
  Weight: 92 kg

DRUGS (16)
  1. ETOPOSIDE [Suspect]
     Active Substance: ETOPOSIDE
     Indication: Adenocarcinoma metastatic
  2. CISPLATIN [Suspect]
     Active Substance: CISPLATIN
     Indication: Adenocarcinoma metastatic
     Route: 042
  3. CLONAZEPAM [Suspect]
     Active Substance: CLONAZEPAM
  4. SODIUM CHLORIDE [Concomitant]
     Active Substance: SODIUM CHLORIDE
     Indication: Adenocarcinoma metastatic
  5. DEXAMETHASONE [Concomitant]
     Active Substance: DEXAMETHASONE
  6. HYDROMORPHONE [Concomitant]
     Active Substance: HYDROMORPHONE
     Dosage: CAPSULE,?SUSTAINED-?RELEASE
  7. LORAZEPAM [Concomitant]
     Active Substance: LORAZEPAM
  8. METOCLOPRAMIDE [Concomitant]
     Active Substance: METOCLOPRAMIDE
  9. ONDANSETRON [Concomitant]
     Active Substance: ONDANSETRON
  10. PANTOPRAZOLE [Concomitant]
     Active Substance: PANTOPRAZOLE
  11. RIVAROXABAN [Concomitant]
     Active Substance: RIVAROXABAN
  12. SENNA [Concomitant]
     Active Substance: SENNA LEAF\SENNOSIDES\SENNOSIDES A AND B
  13. SODIUM PHOSPHATE [Concomitant]
     Active Substance: SODIUM PHOSPHATE
  14. TRAZODONE [Concomitant]
     Active Substance: TRAZODONE HYDROCHLORIDE
  15. VENLAFAXINE [Concomitant]
     Active Substance: VENLAFAXINE HYDROCHLORIDE
     Dosage: EXTENDED RELEASE CAPSULE
  16. ZOPICLONE [Concomitant]
     Active Substance: ZOPICLONE

REACTIONS (3)
  - Generalised oedema [Recovered/Resolved]
  - Hepatic failure [Recovered/Resolved]
  - Oral candidiasis [Recovered/Resolved]
